FAERS Safety Report 8306745-5 (Version None)
Quarter: 2012Q2

REPORT INFORMATION
  Report Type: 
  Country: None (occurrence: None)
  Receive Date: 20120424
  Receipt Date: 20120418
  Transmission Date: 20120825
  Serious: No
  Sender: FDA-Public Use
  Company Number: US-PFIZER INC-2012096536

PATIENT
  Sex: Female
  Weight: 132 kg

DRUGS (5)
  1. BENADRYL [Concomitant]
     Indication: SEASONAL ALLERGY
     Dosage: UNK
  2. EFFEXOR XR [Suspect]
     Indication: DEPRESSION
     Dosage: 150 MG, 1X/DAY
     Route: 048
     Dates: start: 20110101
  3. NAPROXEN [Concomitant]
     Indication: PAIN
     Dosage: UNK
  4. EFFEXOR XR [Suspect]
     Dosage: UNK
     Route: 048
     Dates: end: 20120301
  5. NAPROXEN [Concomitant]

REACTIONS (3)
  - HEADACHE [None]
  - FEELING ABNORMAL [None]
  - EMOTIONAL DISORDER [None]
